FAERS Safety Report 8244645-X (Version None)
Quarter: 2012Q1

REPORT INFORMATION
  Report Type: 
  Country: None (occurrence: None)
  Receive Date: 20120329
  Receipt Date: 20111128
  Transmission Date: 20120608
  Serious: No
  Sender: FDA-Public Use
  Company Number: US-MYLANLABS-2011S1024752

PATIENT
  Age: 46 Year
  Sex: Male
  Weight: 97.52 kg

DRUGS (7)
  1. FENTANYL-100 [Suspect]
     Indication: CANCER PAIN
     Dosage: CHANGED Q72H
     Route: 062
     Dates: start: 20110801
  2. TRAZODONE HCL [Concomitant]
  3. GLIPIZIDE [Concomitant]
  4. OMEPRAZOLE [Concomitant]
  5. TYLENOL [Concomitant]
  6. METFORMIN HCL [Concomitant]
  7. TIZANIDINE HCL [Concomitant]

REACTIONS (2)
  - CHILLS [None]
  - HYPERHIDROSIS [None]
